FAERS Safety Report 9043835 (Version 1)
Quarter: 2013Q1

REPORT INFORMATION
  Report Type: Report from Study
  Country: US (occurrence: US)
  Receive Date: 20130129
  Receipt Date: 20130129
  Transmission Date: 20140127
  Serious: No
  Sender: FDA-Public Use
  Company Number: US-ABBOTT-12P-163-0910014-00

PATIENT
  Age: 60 Year
  Sex: Female

DRUGS (10)
  1. HUMIRA 40 MG/0.8 ML PEN [Suspect]
     Indication: CROHN^S DISEASE
     Dates: start: 20111103
  2. PENTASA [Concomitant]
     Indication: CROHN^S DISEASE
  3. PRAVACHOL [Concomitant]
     Indication: BLOOD CHOLESTEROL INCREASED
  4. PRINIVIL [Concomitant]
     Indication: HYPERTENSION
  5. TOPROL XL [Concomitant]
     Indication: HYPERTENSION
  6. NORVASC [Concomitant]
     Indication: HYPERTENSION
  7. METHADONE [Concomitant]
     Indication: BACK PAIN
  8. RESTASIS [Concomitant]
     Indication: DRY EYE
     Dosage: 2 GTT BOTH EYES DAILY
  9. MAXZIDE [Concomitant]
     Indication: DIURETIC THERAPY
     Dosage: 37.5/25
  10. ATIVAN [Concomitant]
     Indication: ANXIETY

REACTIONS (5)
  - Stress [Not Recovered/Not Resolved]
  - Crohn^s disease [Not Recovered/Not Resolved]
  - Vomiting [Not Recovered/Not Resolved]
  - Emotional distress [Not Recovered/Not Resolved]
  - Joint swelling [Not Recovered/Not Resolved]
